FAERS Safety Report 5013285-8 (Version None)
Quarter: 2006Q2

REPORT INFORMATION
  Report Type: 
  Country: None (occurrence: None)
  Receive Date: 20060530
  Receipt Date: 20060405
  Transmission Date: 20061013
  Serious: Yes (Other)
  Sender: FDA-Public Use
  Company Number: US-GLAXOSMITHKLINE-A0600565A

PATIENT
  Age: 55 Year
  Sex: Female

DRUGS (3)
  1. WELLBUTRIN [Suspect]
     Indication: FIBROMYALGIA
     Dosage: 150MG PER DAY
     Route: 048
     Dates: start: 20050601, end: 20051201
  2. PLAQUENIL [Concomitant]
  3. THYROID TAB [Concomitant]

REACTIONS (1)
  - CONVULSION [None]
